FAERS Safety Report 7164462-1 (Version None)
Quarter: 2010Q4

REPORT INFORMATION
  Report Type: 
  Country: None (occurrence: None)
  Receive Date: 20101215
  Receipt Date: 20101209
  Transmission Date: 20110411
  Serious: Yes (Death)
  Sender: FDA-Public Use
  Company Number: IE-MEDIMMUNE-MEDI-0011924

PATIENT
  Sex: Female

DRUGS (6)
  1. SYNAGIS [Suspect]
     Route: 030
     Dates: start: 20101022, end: 20101022
  2. CAPTOPRIL [Concomitant]
     Route: 048
  3. LANSOPRAZOLE [Concomitant]
     Route: 048
  4. SPIRONOLACTONE [Concomitant]
     Route: 048
  5. FUROSEMIDE [Concomitant]
     Route: 048
  6. DIGOXIN [Concomitant]
     Route: 048

REACTIONS (1)
  - DEATH [None]
